FAERS Safety Report 9153632 (Version 1)
Quarter: 2013Q1

REPORT INFORMATION
  Report Type: Spontaneous
  Country: US (occurrence: None)
  Receive Date: 20130306
  Receipt Date: 20130306
  Transmission Date: 20140127
  Serious: Yes (Other)
  Sender: FDA-Public Use
  Company Number: None

PATIENT
  Age: 88 Year
  Sex: Male
  Weight: 90.72 kg

DRUGS (1)
  1. NEO-POLY/HC [Suspect]
     Indication: EAR INFECTION
     Dosage: OTIC
     Dates: start: 20130128, end: 20130128

REACTIONS (1)
  - Ear pain [None]
